FAERS Safety Report 10670550 (Version 1)
Quarter: 2014Q4

REPORT INFORMATION
  Report Type: Spontaneous
  Country: US (occurrence: None)
  Receive Date: 20141208
  Receipt Date: 20141208
  Transmission Date: 20150529
  Serious: No
  Sender: FDA-Public Use
  Company Number: 2014TUS008775

PATIENT
  Age: 72 Year
  Sex: Male

DRUGS (9)
  1. CELECOXIB. [Concomitant]
     Active Substance: CELECOXIB
  2. ASPIRIN. [Concomitant]
     Active Substance: ASPIRIN
  3. ATENOLOL. [Concomitant]
     Active Substance: ATENOLOL
  4. MODAFINIL. [Concomitant]
     Active Substance: MODAFINIL
  5. FOLIC ACID. [Concomitant]
     Active Substance: FOLIC ACID
  6. BUPROPION [Concomitant]
     Active Substance: BUPROPION
  7. ATORVASTATIN [Concomitant]
     Active Substance: ATORVASTATIN
  8. LISINOPRIL. [Concomitant]
     Active Substance: LISINOPRIL
  9. BRINTELLIX [Suspect]
     Active Substance: VORTIOXETINE HYDROBROMIDE
     Indication: DEPRESSION
     Route: 048
     Dates: start: 201406, end: 201407

REACTIONS (2)
  - Drug ineffective [None]
  - Drug interaction [None]
